FAERS Safety Report 12668757 (Version 1)
Quarter: 2016Q3

REPORT INFORMATION
  Report Type: Spontaneous
  Country: US (occurrence: US)
  Receive Date: 20160819
  Receipt Date: 20160819
  Transmission Date: 20161109
  Serious: No
  Sender: FDA-Public Use
  Company Number: US-BAYER-2016-153535

PATIENT
  Sex: Female

DRUGS (2)
  1. ALEVE [Suspect]
     Active Substance: NAPROXEN SODIUM
     Indication: ABDOMINAL PAIN UPPER
     Dosage: 4 DF, QD
     Route: 048
  2. MORPHINE [Concomitant]
     Active Substance: MORPHINE
     Dosage: UNK

REACTIONS (4)
  - Therapeutic response unexpected [Not Recovered/Not Resolved]
  - Drug ineffective [None]
  - Product use issue [None]
  - Abdominal pain upper [Not Recovered/Not Resolved]
